FAERS Safety Report 9663351 (Version 1)
Quarter: 2013Q4

REPORT INFORMATION
  Report Type: Spontaneous
  Country: US (occurrence: US)
  Receive Date: 20131101
  Receipt Date: 20131101
  Transmission Date: 20140711
  Serious: Yes (Other)
  Sender: FDA-Public Use
  Company Number: US-BRISTOL-MYERS SQUIBB COMPANY-19657741

PATIENT
  Age: 66 Year
  Sex: Female
  Weight: 81.63 kg

DRUGS (12)
  1. BYETTA PEN DISPOSABLE [Suspect]
     Dosage: 5MCG
  2. ALPRAZOLAM [Concomitant]
     Route: 048
  3. METFORMIN HCL [Concomitant]
  4. PRAVASTATIN SODIUM [Concomitant]
     Route: 048
  5. PROPRANOLOL [Concomitant]
     Route: 048
  6. PRAVACHOL [Concomitant]
  7. ZITHROMAX [Concomitant]
  8. VYTORIN [Concomitant]
  9. AMOXICILLIN [Concomitant]
  10. JANUVIA [Concomitant]
  11. HYDROCODONE [Concomitant]
  12. HYDROCHLOROTHIAZIDE [Concomitant]

REACTIONS (1)
  - Papillary thyroid cancer [Unknown]
